FAERS Safety Report 13209070 (Version 3)
Quarter: 2017Q2

REPORT INFORMATION
  Report Type: Spontaneous
  Country: US (occurrence: US)
  Receive Date: 20170209
  Receipt Date: 20170419
  Transmission Date: 20170830
  Serious: Yes (Hospitalization, Other)
  Sender: FDA-Public Use
  Company Number: PHHY2017US016876

PATIENT
  Age: 25 Year
  Sex: Male

DRUGS (1)
  1. MYCOPHENOLIC ACID. [Suspect]
     Active Substance: MYCOPHENOLIC ACID
     Indication: GLOMERULONEPHRITIS MEMBRANOUS
     Route: 065

REACTIONS (25)
  - Hypothermia [Unknown]
  - Pyrexia [Unknown]
  - Abdominal distension [Unknown]
  - Hepatomegaly [Unknown]
  - Ocular icterus [Unknown]
  - Haemorrhagic diathesis [Unknown]
  - Genital herpes [Unknown]
  - Hypoglycaemia [Unknown]
  - Brain death [Unknown]
  - Coma [Unknown]
  - Rash vesicular [Unknown]
  - Acute hepatic failure [Unknown]
  - Hypotension [Unknown]
  - Multiple organ dysfunction syndrome [Unknown]
  - Acute kidney injury [Unknown]
  - Influenza like illness [Unknown]
  - Mental status changes [Unknown]
  - Tachypnoea [Unknown]
  - Product use in unapproved indication [Unknown]
  - Hypoxia [Unknown]
  - Herpes simplex hepatitis [Unknown]
  - Abdominal pain upper [Unknown]
  - Encephalopathy [Unknown]
  - Condition aggravated [Unknown]
  - Tachycardia [Unknown]
